FAERS Safety Report 6638343-3 (Version None)
Quarter: 2010Q1

REPORT INFORMATION
  Report Type: 
  Country: None (occurrence: None)
  Receive Date: 20100312
  Receipt Date: 20100305
  Transmission Date: 20100710
  Serious: Yes (Hospitalization)
  Sender: FDA-Public Use
  Company Number: 2010PL000027

PATIENT
  Age: 28 Year
  Sex: Female

DRUGS (1)
  1. AZATHIOPRINE [Suspect]
     Indication: CROHN'S DISEASE
     Dosage: 2 MG/KG;QD
     Dates: start: 20040901

REACTIONS (6)
  - AMNESIA [None]
  - ASTHENIA [None]
  - ENCEPHALITIS HERPES [None]
  - NAUSEA [None]
  - NUCHAL RIGIDITY [None]
  - PHOTOPHOBIA [None]
